FAERS Safety Report 17531577 (Version 2)
Quarter: 2022Q2

REPORT INFORMATION
  Report Type: Report from Study
  Country: US (occurrence: US)
  Receive Date: 20200312
  Receipt Date: 20220504
  Transmission Date: 20220721
  Serious: No
  Sender: FDA-Public Use
  Company Number: US-TEVA-2020-US-1197197

PATIENT
  Age: 18 Year
  Sex: Male

DRUGS (3)
  1. CLARAVIS [Suspect]
     Active Substance: ISOTRETINOIN
     Indication: Acne cystic
     Dosage: 40 MILLIGRAM DAILY;
     Route: 065
     Dates: start: 201910
  2. CLARAVIS [Suspect]
     Active Substance: ISOTRETINOIN
     Dosage: 60 MILLIGRAM DAILY;
     Route: 065
     Dates: start: 201910
  3. CLARAVIS [Suspect]
     Active Substance: ISOTRETINOIN
     Dosage: 20 MILLIGRAM DAILY;
     Route: 065
     Dates: start: 201910

REACTIONS (4)
  - Erythema [Not Recovered/Not Resolved]
  - Dry skin [Not Recovered/Not Resolved]
  - Keloid scar [Not Recovered/Not Resolved]
  - Blood cholesterol increased [Unknown]
